FAERS Safety Report 23125277 (Version 1)
Quarter: 2023Q4

REPORT INFORMATION
  Report Type: Spontaneous
  Country: US (occurrence: US)
  Receive Date: 20231030
  Receipt Date: 20231030
  Transmission Date: 20240109
  Serious: Yes (Hospitalization, Other)
  Sender: FDA-Public Use
  Company Number: US-SUN PHARMACEUTICAL INDUSTRIES LTD-2023R1-407009

PATIENT
  Age: 54 Year
  Sex: Male

DRUGS (5)
  1. BUPRENORPHINE [Interacting]
     Active Substance: BUPRENORPHINE
     Indication: Drug use disorder
     Dosage: 4 MILLIGRAM, BID
     Route: 065
  2. QUETIAPINE [Suspect]
     Active Substance: QUETIAPINE
     Indication: Insomnia
     Dosage: 50 MILLIGRAM, PRN
     Route: 065
  3. VENLAFAXINE [Suspect]
     Active Substance: VENLAFAXINE HYDROCHLORIDE
     Indication: Tremor
     Dosage: 225 MILLIGRAM, DAILY
     Route: 065
  4. VENLAFAXINE [Suspect]
     Active Substance: VENLAFAXINE HYDROCHLORIDE
     Dosage: 150 MILLIGRAM, DAILY
     Route: 065
  5. VENLAFAXINE [Suspect]
     Active Substance: VENLAFAXINE HYDROCHLORIDE
     Dosage: 75 MILLIGRAM, DAILY
     Route: 065

REACTIONS (2)
  - Serotonin syndrome [Unknown]
  - Drug interaction [Unknown]
